FAERS Safety Report 6873169-7 (Version None)
Quarter: 2010Q3

REPORT INFORMATION
  Report Type: 
  Country: None (occurrence: None)
  Receive Date: 20100723
  Receipt Date: 20081130
  Transmission Date: 20110219
  Serious: No
  Sender: FDA-Public Use
  Company Number: US-PFIZER INC-2008158153

PATIENT
  Age: 44 Year
  Sex: Male
  Weight: 83.9 kg

DRUGS (3)
  1. CHANTIX [Suspect]
     Indication: SMOKING CESSATION THERAPY
     Dosage: 0.5 MG, UNK
     Dates: start: 20081101
  2. LIPITOR [Concomitant]
     Dosage: UNK
  3. LOVAZA [Concomitant]
     Dosage: UNK

REACTIONS (2)
  - FATIGUE [None]
  - HEADACHE [None]
